FAERS Safety Report 8698552 (Version 2)
Quarter: 2012Q4

REPORT INFORMATION
  Report Type: 
  Country: FR (occurrence: FR)
  Receive Date: 20120802
  Receipt Date: 20120918
  Transmission Date: 20130627
  Serious: Yes (Death, Other)
  Sender: FDA-Public Use
  Company Number: FR-PFIZER INC-2012182157

PATIENT
  Age: 65 Year
  Sex: Male

DRUGS (8)
  1. SUTENT [Suspect]
     Dosage: 50 mg, 1x/day(cures of 4 weeks)
     Route: 048
     Dates: start: 200702, end: 20120531
  2. NOVOMIX [Concomitant]
     Dosage: UNK
     Route: 058
     Dates: start: 1999
  3. NOVORAPID [Concomitant]
     Dosage: UNK
     Route: 058
     Dates: start: 1999
  4. COVERSYL [Concomitant]
     Dosage: 2.5 mg, 1x/day
     Route: 048
     Dates: start: 2009, end: 20120601
  5. NEURONTIN [Concomitant]
     Dosage: 600 mg, 2x/day
     Route: 048
     Dates: start: 2007, end: 20120604
  6. LEVOTHYROX [Concomitant]
     Dosage: 150 ug, 1x/day
     Route: 048
     Dates: start: 2009
  7. EUPANTOL [Concomitant]
     Dosage: 20 mg, 1x/day
  8. GAVISCON [Concomitant]

REACTIONS (10)
  - Multi-organ failure [Fatal]
  - Hepatic failure [Fatal]
  - Thrombotic microangiopathy [Fatal]
  - Cardio-respiratory arrest [Recovered/Resolved]
  - Myositis [Unknown]
  - Hepatitis cholestatic [Unknown]
  - Encephalitis [Unknown]
  - Tubulointerstitial nephritis [Unknown]
  - Haemolytic anaemia [Unknown]
  - Thrombocytopenia [Unknown]
